FAERS Safety Report 6222241-3 (Version None)
Quarter: 2009Q2

REPORT INFORMATION
  Report Type: 
  Country: None (occurrence: None)
  Receive Date: 20090611
  Receipt Date: 20090601
  Transmission Date: 20091009
  Serious: Yes (Disabling, Other)
  Sender: FDA-Public Use
  Company Number: PHEH2008US07165

PATIENT
  Sex: Male

DRUGS (1)
  1. ZOMETA [Suspect]
     Dosage: 1 MG, UNK

REACTIONS (33)
  - ABSCESS [None]
  - ACTIVITIES OF DAILY LIVING IMPAIRED [None]
  - ANAEMIA [None]
  - ANHEDONIA [None]
  - ANXIETY [None]
  - BACK PAIN [None]
  - CARDIAC FAILURE CONGESTIVE [None]
  - CHRONIC OBSTRUCTIVE PULMONARY DISEASE [None]
  - COLON CANCER [None]
  - COLON OPERATION [None]
  - CONSTIPATION [None]
  - DEBRIDEMENT [None]
  - DEPRESSION [None]
  - DIZZINESS [None]
  - FATIGUE [None]
  - GINGIVITIS [None]
  - IMPAIRED HEALING [None]
  - INFLAMMATION [None]
  - INJURY [None]
  - JAW FRACTURE [None]
  - MASTICATION DISORDER [None]
  - MENTAL DISORDER [None]
  - OSTEOARTHRITIS [None]
  - OSTEONECROSIS [None]
  - OSTEOPENIA [None]
  - PAIN [None]
  - PHYSICAL DISABILITY [None]
  - SOMNOLENCE [None]
  - SPINAL OSTEOARTHRITIS [None]
  - THROMBOPHLEBITIS [None]
  - TOOTH IMPACTED [None]
  - TOOTHACHE [None]
  - VISUAL IMPAIRMENT [None]
